FAERS Safety Report 24856358 (Version 3)
Quarter: 2025Q4

REPORT INFORMATION
  Report Type: Spontaneous
  Country: CA (occurrence: CA)
  Receive Date: 20250117
  Receipt Date: 20251110
  Transmission Date: 20260118
  Serious: Yes (Other)
  Sender: PFIZER
  Company Number: CA-PFIZER INC-202500002634

PATIENT
  Age: 22 Year
  Sex: Male

DRUGS (3)
  1. RUXIENCE [Suspect]
     Active Substance: RITUXIMAB-PVVR
     Indication: Glomerulonephritis minimal lesion
     Dosage: 720 MG, WEEKLY (X 4 WEEKS)
     Route: 042
     Dates: start: 20250110
  2. RUXIENCE [Suspect]
     Active Substance: RITUXIMAB-PVVR
     Dosage: 720 MG, WEEKLY X 4 WEEKS
     Route: 042
     Dates: start: 20250110
  3. RUXIENCE [Suspect]
     Active Substance: RITUXIMAB-PVVR
     Dosage: 720 MG, WEEKLY X 4 WEEKS
     Route: 042
     Dates: start: 20250131

REACTIONS (5)
  - Throat irritation [Recovered/Resolved]
  - Pruritus [Recovered/Resolved]
  - Rash erythematous [Recovered/Resolved]
  - Off label use [Unknown]
  - Drug effective for unapproved indication [Unknown]

NARRATIVE: CASE EVENT DATE: 20250101
